FAERS Safety Report 18104153 (Version 1)
Quarter: 2020Q3

REPORT INFORMATION
  Report Type: Spontaneous
  Country: US (occurrence: US)
  Receive Date: 20200803
  Receipt Date: 20200803
  Transmission Date: 20201103
  Serious: Yes (Other)
  Sender: FDA-Public Use
  Company Number: None

PATIENT
  Age: 63 Year
  Sex: Male
  Weight: 94 kg

DRUGS (11)
  1. HEPARIN [Concomitant]
     Active Substance: HEPARIN SODIUM
     Dates: start: 20200726
  2. PANTOPRAZOLE 40MG [Concomitant]
     Active Substance: PANTOPRAZOLE SODIUM
     Dates: start: 20200727
  3. FENTANYL. [Concomitant]
     Active Substance: FENTANYL
     Dates: start: 20200726, end: 20200730
  4. KETAMINE [Concomitant]
     Active Substance: KETAMINE
     Dates: start: 20200726
  5. THIAMINE 100MG [Concomitant]
     Dates: start: 20200727
  6. PIPERACILLIN/TAZOBACTAM [Concomitant]
     Active Substance: PIPERACILLIN SODIUM\TAZOBACTAM SODIUM
     Dates: start: 20200726, end: 20200731
  7. REMDESIVIR. [Suspect]
     Active Substance: REMDESIVIR
     Indication: COVID-19
     Route: 041
     Dates: start: 20200723, end: 20200731
  8. VANCOMYCIN 1500MG [Concomitant]
     Active Substance: VANCOMYCIN
     Dates: start: 20200726, end: 20200727
  9. DEXAMETHASONE 6MG [Concomitant]
     Dates: start: 20200723
  10. MIDAZOLAM. [Concomitant]
     Active Substance: MIDAZOLAM
     Dates: start: 20200726
  11. NOREPINEPHRINE. [Concomitant]
     Active Substance: NOREPINEPHRINE
     Dates: start: 20200726

REACTIONS (1)
  - Acute kidney injury [None]

NARRATIVE: CASE EVENT DATE: 20200731
